FAERS Safety Report 7533251-8 (Version None)
Quarter: 2011Q2

REPORT INFORMATION
  Report Type: 
  Country: None (occurrence: None)
  Receive Date: 20110608
  Receipt Date: 20110126
  Transmission Date: 20111010
  Serious: Yes (Other)
  Sender: FDA-Public Use
  Company Number: US-BAYER-201031845NA

PATIENT
  Age: 27 Year
  Sex: Female
  Weight: 64.399 kg

DRUGS (37)
  1. DROSPIRENONE AND ETHINYL ESTRADIOL [Suspect]
     Indication: CONTRACEPTION
     Route: 048
     Dates: start: 20080715, end: 20091031
  2. LUNESTA [Concomitant]
     Indication: INSOMNIA
  3. SERTRALINE HYDROCHLORIDE [Concomitant]
     Indication: GASTRIC DISORDER
     Dosage: UNK
     Route: 048
     Dates: start: 20080701, end: 20081101
  4. DEXTROMETHORPHAN W/GUAIFENESIN/PSEUDOEPHEDRIN [Concomitant]
  5. ADVIL LIQUI-GELS [Concomitant]
  6. FLUTICASONE PROPIONATE [Concomitant]
     Dosage: UNK
     Dates: start: 20080201, end: 20081101
  7. MINOCYCLINE HCL [Concomitant]
     Indication: DERMATITIS
     Dosage: UNK
     Dates: start: 20081101, end: 20081201
  8. AZITHROMYCIN [Concomitant]
  9. ASCORBIC ACID [Concomitant]
  10. ASTELIN [Concomitant]
     Route: 045
  11. PRISTIQ [Concomitant]
     Indication: DEPRESSION
     Dosage: UNK
     Route: 048
  12. NAPROXEN (ALEVE) [Concomitant]
  13. CARISOPRODOL [Concomitant]
     Indication: MUSCLE RELAXANT THERAPY
     Dosage: UNK
     Dates: start: 20090701
  14. SITREX [Concomitant]
  15. YASMIN [Suspect]
     Indication: CONTRACEPTION
     Route: 048
     Dates: start: 20030529, end: 20080714
  16. PRISTIQ [Concomitant]
     Indication: GASTRIC DISORDER
  17. FLUTICASONE PROPIONATE [Concomitant]
     Dosage: UNK
     Route: 045
  18. ARTHROTEC [Concomitant]
     Indication: NECK PAIN
     Dosage: UNK
     Dates: start: 20090928
  19. LIBRAX [Concomitant]
  20. YAZ [Suspect]
     Indication: CONTRACEPTION
     Route: 048
     Dates: start: 20091101, end: 20100129
  21. DROSPIRENONE AND ETHINYL ESTRADIOL [Suspect]
     Indication: PREMENSTRUAL SYNDROME
  22. IBUPROFEN [Concomitant]
  23. OMEPRAZOLE [Concomitant]
     Indication: DYSPEPSIA
     Dosage: UNK
     Dates: start: 20090501
  24. METHYLPREDNISOLONE ACETATE [Concomitant]
     Indication: JOINT INJURY
     Dosage: UNK
     Dates: start: 20080201, end: 20081101
  25. CYMBALTA [Concomitant]
     Indication: STRESS
     Dosage: UNK
     Dates: start: 20090701
  26. YASMIN [Suspect]
     Indication: PREMENSTRUAL SYNDROME
  27. NERVOUS SYSTEM [Concomitant]
     Indication: ATTENTION DEFICIT/HYPERACTIVITY DISORDER
     Dosage: UNK UNK, QD
     Route: 048
     Dates: start: 20090713
  28. CONCERTA [Concomitant]
     Dosage: UNK
     Dates: start: 20090101
  29. PEPCID [Concomitant]
     Indication: GASTROOESOPHAGEAL REFLUX DISEASE
  30. ARTHROTEC [Concomitant]
     Indication: MUSCULOSKELETAL PAIN
  31. LUNESTA [Concomitant]
     Route: 048
  32. YAZ [Suspect]
     Indication: PREMENSTRUAL SYNDROME
  33. CICLESONIDE [Concomitant]
     Indication: MULTIPLE ALLERGIES
     Dosage: UNK
     Dates: start: 20081101
  34. AMITRIPTYLINE HYDROCHLORIDE [Concomitant]
     Indication: SLEEP DISORDER
     Dosage: UNK
     Route: 048
     Dates: start: 20081001, end: 20081101
  35. ETODOLAC [Concomitant]
     Indication: ANTIINFLAMMATORY THERAPY
     Dosage: UNK
     Route: 048
     Dates: start: 20081001, end: 20081101
  36. CLINDAMYCIN PHOSPHATE [Concomitant]
     Route: 061
  37. FIBERCON [Concomitant]
     Dosage: UNK
     Route: 048
     Dates: start: 20090928

REACTIONS (3)
  - BILIARY DYSKINESIA [None]
  - CHOLECYSTITIS CHRONIC [None]
  - GALLBLADDER DISORDER [None]
